FAERS Safety Report 21414419 (Version 1)
Quarter: 2022Q4

REPORT INFORMATION
  Report Type: Spontaneous
  Country: GB (occurrence: GB)
  Receive Date: 20221006
  Receipt Date: 20221006
  Transmission Date: 20230113
  Serious: Yes (Other)
  Sender: FDA-Public Use
  Company Number: GB-SA-SAC20221001000024

PATIENT
  Age: 63 Year
  Sex: Female

DRUGS (2)
  1. KEVZARA [Suspect]
     Active Substance: SARILUMAB
     Indication: Rheumatoid arthritis
     Route: 058
     Dates: start: 202207, end: 202209
  2. METHOTREXATE [Concomitant]
     Active Substance: METHOTREXATE

REACTIONS (19)
  - Choking [Unknown]
  - Illness [Unknown]
  - Constipation [Unknown]
  - Vomiting [Unknown]
  - Abdominal pain lower [Unknown]
  - Diarrhoea [Unknown]
  - Cold sweat [Unknown]
  - Pyrexia [Unknown]
  - Headache [Unknown]
  - Fatigue [Unknown]
  - Insomnia [Unknown]
  - White blood cell count decreased [Unknown]
  - Weight decreased [Unknown]
  - Dehydration [Unknown]
  - Impaired quality of life [Unknown]
  - Breath odour [Unknown]
  - Eating disorder [Unknown]
  - Abdominal pain [Unknown]
  - Nasopharyngitis [Unknown]

NARRATIVE: CASE EVENT DATE: 20220901
